FAERS Safety Report 26202541 (Version 1)
Quarter: 2025Q4

REPORT INFORMATION
  Report Type: Spontaneous
  Country: GB (occurrence: GB)
  Receive Date: 20251226
  Receipt Date: 20251226
  Transmission Date: 20260117
  Serious: Yes (Congenital Anomaly, Other)
  Sender: TEVA
  Company Number: GB-ASTRAZENECA-202512GLO004316GB

PATIENT

DRUGS (16)
  1. QUETIAPINE [Suspect]
     Active Substance: QUETIAPINE
     Indication: Product used for unknown indication
     Dosage: QUETIAPINE FUMARATE
     Route: 064
     Dates: start: 20150120
  2. AMOXICILLIN [Suspect]
     Active Substance: AMOXICILLIN
     Indication: Product used for unknown indication
     Dosage: TIME INTERVAL: 0.33333333 DAYS: FOR 1 WEEK
     Route: 064
     Dates: start: 20250925, end: 20250925
  3. ALBUTEROL [Suspect]
     Active Substance: ALBUTEROL
     Indication: Product used for unknown indication
     Dosage: TIME INTERVAL: AS NECESSARY: PUFFS
     Route: 064
     Dates: start: 20240528
  4. SENNA [Suspect]
     Active Substance: SENNOSIDES
     Indication: Product used for unknown indication
     Dosage: 150 MILLIGRAM IN
     Route: 064
     Dates: start: 20240731
  5. DULOXETINE [Suspect]
     Active Substance: DULOXETINE
     Indication: Product used for unknown indication
     Route: 064
     Dates: start: 20230223
  6. CLOTRIMAZOLE [Suspect]
     Active Substance: CLOTRIMAZOLE
     Indication: Product used for unknown indication
     Dosage: AT NIGHT FOR 6 NIGHT
     Route: 064
     Dates: start: 20250804, end: 20250811
  7. CHOLECALCIFEROL [Suspect]
     Active Substance: CHOLECALCIFEROL
     Indication: Product used for unknown indication
     Route: 064
     Dates: start: 20250320
  8. FOLIC ACID [Concomitant]
     Active Substance: FOLIC ACID
     Indication: Product used for unknown indication
     Dosage: 400 MICROGRAM
     Route: 064
     Dates: start: 20250804, end: 20250811
  9. POLYETHYLENE GLYCOLS [Suspect]
     Active Substance: POLYETHYLENE GLYCOLS
     Indication: Product used for unknown indication
     Dosage: 1-2 SACHETS DAILY
     Route: 064
     Dates: start: 20250409
  10. BECLOMETHASONE DIPROPIONATE\BORNEOL\CAMPHOR (SYNTHETIC)\MENTHOL\METHYL [Suspect]
     Active Substance: BECLOMETHASONE DIPROPIONATE\BORNEOL\CAMPHOR (SYNTHETIC)\MENTHOL\METHYL SALICYLATE\THYMOL
     Indication: Product used for unknown indication
     Dosage: (DOSE // DAILY DOSE):  X 200 MICROGRAM IN   // 400 MICROGRAM, BID
     Route: 064
     Dates: start: 20240528
  11. BECLOMETHASONE DIPROPIONATE\BORNEOL\CAMPHOR (SYNTHETIC)\MENTHOL\METHYL [Suspect]
     Active Substance: BECLOMETHASONE DIPROPIONATE\BORNEOL\CAMPHOR (SYNTHETIC)\MENTHOL\METHYL SALICYLATE\THYMOL
     Indication: Product used for unknown indication
     Dosage: ((DOSE // DAILY DOSE) : X 200 MICROGRAM IN // MICROGRAM, BID
     Route: 064
     Dates: start: 20250528
  12. ENOXAPARIN SODIUM [Suspect]
     Active Substance: ENOXAPARIN SODIUM
     Indication: Product used for unknown indication
     Route: 064
     Dates: start: 20250514
  13. OMEPRAZOLE [Suspect]
     Active Substance: OMEPRAZOLE
     Indication: Product used for unknown indication
     Route: 064
     Dates: start: 20240731
  14. LACTULOSE [Suspect]
     Active Substance: LACTULOSE
     Indication: Product used for unknown indication
     Dosage: 5 MILLILITRE
     Route: 064
     Dates: start: 20250409
  15. MIRTAZAPINE [Suspect]
     Active Substance: MIRTAZAPINE
     Indication: Product used for unknown indication
     Route: 064
     Dates: start: 20220605
  16. DISODIUM HYDROGEN CITRATE\SODIUM LAURYL SULFATE [Suspect]
     Active Substance: DISODIUM HYDROGEN CITRATE\SODIUM LAURYL SULFATE
     Indication: Product used for unknown indication
     Dosage: TIME INTERVAL: AS NECESSARY: RECTALLY
     Route: 064
     Dates: start: 20250807

REACTIONS (2)
  - Cleft palate [Not Recovered/Not Resolved]
  - Foetal exposure during pregnancy [Recovered/Resolved]

NARRATIVE: CASE EVENT DATE: 20251101
